FAERS Safety Report 6261104-4 (Version None)
Quarter: 2009Q3

REPORT INFORMATION
  Report Type: 
  Country: None (occurrence: None)
  Receive Date: 20090707
  Receipt Date: 20090625
  Transmission Date: 20100115
  Serious: Yes (Other)
  Sender: FDA-Public Use
  Company Number: 2009AP002583

PATIENT
  Age: 37 Year
  Sex: Male

DRUGS (1)
  1. OXCARBAZEPINE [Suspect]

REACTIONS (4)
  - AGGRESSION [None]
  - COORDINATION ABNORMAL [None]
  - DISORIENTATION [None]
  - GRAND MAL CONVULSION [None]
